FAERS Safety Report 15612218 (Version 4)
Quarter: 2019Q2

REPORT INFORMATION
  Report Type: Report from Study
  Country: US (occurrence: US)
  Receive Date: 20181113
  Receipt Date: 20190610
  Transmission Date: 20190711
  Serious: Yes (Hospitalization)
  Sender: FDA-Public Use
  Company Number: PHHO2017US007354

PATIENT
  Age: 14 Year
  Sex: Female
  Weight: 41.9 kg

DRUGS (13)
  1. INC424A [Suspect]
     Active Substance: RUXOLITINIB
     Dosage: 55 MG, BID
     Route: 048
     Dates: start: 20170428, end: 20170511
  2. CYTARABINE. [Suspect]
     Active Substance: CYTARABINE
     Indication: ACUTE LYMPHOCYTIC LEUKAEMIA
     Dosage: 104 MG, ONCE/SINGLE
     Route: 042
     Dates: start: 20160930
  3. PEGASPARGASE [Suspect]
     Active Substance: PEGASPARGASE
     Dosage: 3450 IU, DAY 4
     Route: 042
     Dates: start: 20170515
  4. PEGASPARGASE [Suspect]
     Active Substance: PEGASPARGASE
     Indication: ACUTE LYMPHOCYTIC LEUKAEMIA
     Dosage: 3450 IU, DAY 4
     Route: 042
     Dates: start: 20171014
  5. DEXAMETHASONE. [Suspect]
     Active Substance: DEXAMETHASONE
     Dosage: 7 MG, BID ( 7 DAYS)
     Route: 048
     Dates: start: 20170411
  6. DOXORUBICIN [Suspect]
     Active Substance: DOXORUBICIN
     Indication: ACUTE LYMPHOCYTIC LEUKAEMIA
     Dosage: 34.76 MG, ONCE/SINGLE (1,8 AND 15 DAYS)
     Route: 042
     Dates: start: 20170328
  7. THIOGUANINE [Suspect]
     Active Substance: THIOGUANINE
     Dosage: 80 MG (MON-SAT) AND 100 MG (ON SUN)
     Route: 048
     Dates: start: 20170514
  8. METHOTREXATE. [Suspect]
     Active Substance: METHOTREXATE
     Indication: ACUTE LYMPHOCYTIC LEUKAEMIA
     Dosage: 15 MG, ONCE/SINGLE
     Route: 037
     Dates: start: 20160930
  9. INC424A [Suspect]
     Active Substance: RUXOLITINIB
     Indication: ACUTE LYMPHOCYTIC LEUKAEMIA
     Dosage: 55 MG, BID
     Route: 048
     Dates: start: 20160930, end: 20170410
  10. THIOGUANINE [Suspect]
     Active Substance: THIOGUANINE
     Indication: ACUTE LYMPHOCYTIC LEUKAEMIA
     Dosage: 80 MG (MON-SAT) AND 100 MG (ON SUN)
     Route: 048
     Dates: start: 20170403, end: 20170511
  11. VINCRISTINE [Suspect]
     Active Substance: VINCRISTINE
     Indication: ACUTE LYMPHOCYTIC LEUKAEMIA
     Dosage: 2 MG, ONCE/SINGLE (ON DAYS 1, 8 AND 15)
     Route: 042
     Dates: start: 20161014
  12. DEXAMETHASONE. [Suspect]
     Active Substance: DEXAMETHASONE
     Indication: ACUTE LYMPHOCYTIC LEUKAEMIA
     Dosage: 7 MG, BID ( 7 DAYS)
     Route: 048
     Dates: start: 20170328
  13. INC424A [Suspect]
     Active Substance: RUXOLITINIB
     Dosage: 55 MG, BID
     Route: 048
     Dates: start: 20170613

REACTIONS (2)
  - Febrile neutropenia [Recovered/Resolved with Sequelae]
  - Febrile neutropenia [Recovered/Resolved]

NARRATIVE: CASE EVENT DATE: 20170414
